FAERS Safety Report 25750864 (Version 1)
Quarter: 2025Q3

REPORT INFORMATION
  Report Type: Spontaneous
  Country: US (occurrence: None)
  Receive Date: 20250829
  Receipt Date: 20250829
  Transmission Date: 20251020
  Serious: No
  Sender: FDA-CTU
  Company Number: None

PATIENT
  Age: 73 Year
  Sex: Female
  Weight: 82.6 kg

DRUGS (2)
  1. DEFINITY [Suspect]
     Active Substance: PERFLUTREN
     Route: 042
     Dates: start: 20250827, end: 20250827
  2. DEFINITY [Concomitant]
     Active Substance: PERFLUTREN
     Dates: start: 20250827, end: 20250827

REACTIONS (1)
  - Back pain [None]

NARRATIVE: CASE EVENT DATE: 20250827
